FAERS Safety Report 8789602 (Version 1)
Quarter: 2012Q4

REPORT INFORMATION
  Report Type: Spontaneous
  Country: GB (occurrence: None)
  Receive Date: 20120906
  Receipt Date: 20120906
  Transmission Date: 20130627
  Serious: Yes (Other)
  Sender: FDA-Public Use
  Company Number: 1400530

PATIENT

DRUGS (3)
  1. GEMCITABINE HYDROCHLORIDE [Suspect]
  2. UNSPECIFIED INGREDIENT [Suspect]
     Dosage: 52.6 Gy in 20 fractions
  3. CHEMOTHERAPEUTICS [Suspect]

REACTIONS (2)
  - Drug dose omission [None]
  - Gastrointestinal toxicity [None]
